FAERS Safety Report 4323082-4 (Version None)
Quarter: 2004Q1

REPORT INFORMATION
  Report Type: 
  Country: None (occurrence: None)
  Receive Date: 20040322
  Receipt Date: 20040309
  Transmission Date: 20041129
  Serious: Yes (Other)
  Sender: FDA-Public Use
  Company Number: 2004016474

PATIENT
  Age: 56 Year
  Sex: Male

DRUGS (5)
  1. NEURONTIN [Suspect]
     Indication: PAIN
     Dosage: 1800 MG (TID); ORAL
     Route: 048
     Dates: start: 20040305
  2. NEURONTIN [Suspect]
     Indication: RESTLESS LEGS SYNDROME
     Dosage: 1800 MG (TID); ORAL
     Route: 048
     Dates: start: 20040305
  3. NEURONTIN [Suspect]
     Indication: SLEEP DISORDER
     Dosage: 1800 MG (TID); ORAL
     Route: 048
     Dates: start: 20040305
  4. LIPITOR [Suspect]
     Indication: BLOOD CHOLESTEROL INCREASED
     Dosage: UNKNOWN (UNKNOWN), UNKNOWN
     Route: 065
  5. CLOPIDOGREL BISULFATE [Concomitant]

REACTIONS (11)
  - ABNORMAL BEHAVIOUR [None]
  - BLOOD CHOLESTEROL INCREASED [None]
  - CEREBROVASCULAR ACCIDENT [None]
  - CHEST PAIN [None]
  - CONFUSIONAL STATE [None]
  - DEPRESSION [None]
  - DYSARTHRIA [None]
  - INSOMNIA [None]
  - SPEECH DISORDER [None]
  - TREMOR [None]
  - WEIGHT DECREASED [None]
